FAERS Safety Report 8739499 (Version 2)
Quarter: 2013Q4

REPORT INFORMATION
  Report Type: Spontaneous
  Country: FR (occurrence: FR)
  Receive Date: 20120823
  Receipt Date: 20131031
  Transmission Date: 20140711
  Serious: Yes (Hospitalization)
  Sender: FDA-Public Use
  Company Number: FR-009507513-1208FRA007412

PATIENT
  Age: 90 Year
  Sex: Male

DRUGS (10)
  1. INVANZ [Suspect]
     Indication: REMOVAL OF INTERNAL FIXATION
     Dosage: 1 G, QD
     Route: 030
     Dates: start: 20120712, end: 20120726
  2. VIBRAMYCIN (DOXYCYCLINE) [Suspect]
     Indication: REMOVAL OF INTERNAL FIXATION
     Dosage: 200 MG, QD
     Route: 048
     Dates: start: 20120712
  3. LOVENOX [Suspect]
     Indication: REMOVAL OF INTERNAL FIXATION
     Dosage: 4000 IU, QD
     Route: 058
     Dates: start: 20120712
  4. HYPERIUM [Concomitant]
     Route: 048
  5. XATRAL [Concomitant]
     Route: 048
  6. CORDARONE [Concomitant]
     Route: 048
  7. REMINYL [Concomitant]
     Route: 048
  8. KARDEGIC [Concomitant]
     Route: 048
  9. FLIXOTIDE [Concomitant]
     Route: 048
  10. FORADIL [Concomitant]
     Route: 048

REACTIONS (4)
  - Dyskinesia [Recovered/Resolved]
  - Myoclonus [Not Recovered/Not Resolved]
  - Disturbance in attention [Recovered/Resolved]
  - Hallucination, visual [Recovered/Resolved]
